FAERS Safety Report 5834590-9 (Version None)
Quarter: 2008Q3

REPORT INFORMATION
  Report Type: 
  Country: None (occurrence: None)
  Receive Date: 20080801
  Receipt Date: 20080722
  Transmission Date: 20090109
  Serious: No
  Sender: FDA-Public Use
  Company Number: US024170

PATIENT
  Age: 54 Year
  Sex: Female

DRUGS (12)
  1. FENTORA [Suspect]
     Indication: BACK PAIN
     Dosage: 100 UG UNK BUCCAL
     Route: 002
     Dates: start: 20080101, end: 20080101
  2. FENTORA [Suspect]
     Indication: NECK PAIN
     Dosage: 100 UG UNK BUCCAL
     Route: 002
     Dates: start: 20080101, end: 20080101
  3. FENTORA [Suspect]
     Indication: BACK PAIN
     Dosage: 200 UG UNK BUCCAL
     Route: 002
     Dates: start: 20080101
  4. FENTORA [Suspect]
     Indication: NECK PAIN
     Dosage: 200 UG UNK BUCCAL
     Route: 002
     Dates: start: 20080101
  5. METFORMIN HCL [Concomitant]
  6. AVANDIA [Concomitant]
  7. FOSAMAX [Concomitant]
  8. VYTORIN [Concomitant]
  9. NEURONTIN [Concomitant]
  10. UNSPECIFIED BLOOD PRESSURE MEDICATION [Concomitant]
  11. UNSPECIFIED REFLUX MEDICINE [Concomitant]
  12. UNSPECIFIED ASTHMA MEDICATION [Concomitant]

REACTIONS (1)
  - MEDICATION ERROR [None]
